FAERS Safety Report 9681596 (Version 2)
Quarter: 2013Q4

REPORT INFORMATION
  Report Type: Spontaneous
  Country: AR (occurrence: AR)
  Receive Date: 20131111
  Receipt Date: 20131206
  Transmission Date: 20140711
  Serious: Yes (Hospitalization)
  Sender: FDA-Public Use
  Company Number: AR-PFIZER INC-2013317697

PATIENT
  Age: 58 Year
  Sex: Female

DRUGS (1)
  1. SUTENT [Suspect]
     Indication: RENAL CELL CARCINOMA
     Dosage: 50 MG, ONCE DAILY, SCHEME 4/2
     Dates: start: 20131014

REACTIONS (3)
  - Blood urine [Recovered/Resolved]
  - Renal disorder [Not Recovered/Not Resolved]
  - Urinary tract infection [Recovered/Resolved]
